FAERS Safety Report 5368044-3 (Version None)
Quarter: 2007Q2

REPORT INFORMATION
  Report Type: 
  Country: None (occurrence: None)
  Receive Date: 20070622
  Receipt Date: 20070613
  Transmission Date: 20071010
  Serious: Yes (Other)
  Sender: FDA-Public Use
  Company Number: GB-PFIZER INC-2007049044

PATIENT
  Age: 56 Year
  Sex: Female

DRUGS (3)
  1. EPANUTIN SUSPENSION [Suspect]
     Indication: EPILEPSY
  2. EZETIMIBE [Concomitant]
     Indication: BLOOD CHOLESTEROL INCREASED
  3. LEVOTHYROXINE SODIUM [Concomitant]
     Dosage: DAILY DOSE:100MCG

REACTIONS (3)
  - ANTICONVULSANT DRUG LEVEL BELOW THERAPEUTIC [None]
  - BLOOD CHOLESTEROL INCREASED [None]
  - BLOOD THYROID STIMULATING HORMONE INCREASED [None]
